FAERS Safety Report 9400353 (Version 3)
Quarter: 2014Q2

REPORT INFORMATION
  Report Type: Report from Study
  Country: US (occurrence: US)
  Receive Date: 20130715
  Receipt Date: 20140417
  Transmission Date: 20141212
  Serious: Yes (Hospitalization)
  Sender: FDA-Public Use
  Company Number: US-AMGEN-USACT2013048761

PATIENT
  Age: 37 Year
  Sex: Female
  Weight: 80.91 kg

DRUGS (16)
  1. DENOSUMAB [Suspect]
     Indication: BREAST CANCER
     Dosage: UNK
     Route: 058
     Dates: start: 20111028
  2. VICODIN [Concomitant]
     Dosage: 325 - 500 MG, UNK
     Route: 048
     Dates: start: 20120228
  3. EFFEXOR XR [Concomitant]
     Dosage: 75 MUG - 37.5 MG, UNK
     Route: 048
     Dates: start: 20120405
  4. GABAPENTIN [Concomitant]
     Dosage: 300 MG, UNK
     Route: 048
     Dates: start: 20120618
  5. PERCOCET [Concomitant]
     Dosage: 500 MG, UNK
     Route: 048
     Dates: start: 20120203
  6. LINEZOLID [Concomitant]
     Dosage: 600 MG, UNK
     Route: 048
     Dates: start: 20120530
  7. STOOL SOFTENER [Concomitant]
     Dosage: UNK
     Route: 048
     Dates: start: 20111111
  8. IBUPROFEN [Concomitant]
     Dosage: 800 MUG, UNK
     Route: 048
     Dates: start: 20120228
  9. CLARITIN [Concomitant]
     Dosage: 10 MG, UNK
     Route: 048
     Dates: start: 20111108
  10. DIFLUCAN [Concomitant]
     Dosage: UNK
     Route: 048
     Dates: start: 20120315
  11. CALCIUM [Concomitant]
     Dosage: 500 MG, UNK
     Route: 048
     Dates: start: 20111028, end: 20130916
  12. VIT D [Concomitant]
     Dosage: 200 - 400 IU, UNK
     Route: 048
     Dates: start: 20111028, end: 20130916
  13. LEVOFLOXACIN [Concomitant]
     Dosage: 750 MG, UNK
     Route: 048
     Dates: start: 20130328, end: 20130406
  14. FLAGYL                             /00012501/ [Concomitant]
     Dosage: UNK
     Route: 050
     Dates: start: 20130328, end: 20130416
  15. XANAX [Concomitant]
     Dosage: 1 MG, UNK
     Route: 048
     Dates: start: 20130328, end: 20130430
  16. TAMOXIFEN [Concomitant]
     Dosage: UNK

REACTIONS (1)
  - Pulmonary embolism [Unknown]
